FAERS Safety Report 10842454 (Version 24)
Quarter: 2019Q4

REPORT INFORMATION
  Report Type: Spontaneous
  Country: BR (occurrence: BR)
  Receive Date: 20150220
  Receipt Date: 20191228
  Transmission Date: 20200122
  Serious: Yes (Hospitalization, Other)
  Sender: FDA-Public Use
  Company Number: BR-AMGEN-BRASP2015015520

PATIENT
  Age: 51 Year
  Sex: Female
  Weight: 72 kg

DRUGS (41)
  1. PREDNISONE. [Suspect]
     Active Substance: PREDNISONE
     Indication: PAIN
     Dosage: 20 MILLIGRAM, QWK
     Route: 065
     Dates: start: 2015
  2. AMITRIPTYLINE [Interacting]
     Active Substance: AMITRIPTYLINE
     Dosage: 50 MILLIGRAM
     Route: 065
  3. CYCLOBENZAPRINE. [Concomitant]
     Active Substance: CYCLOBENZAPRINE
     Dosage: UNK
  4. PREDNISONE. [Suspect]
     Active Substance: PREDNISONE
     Dosage: 5 MILLIGRAM
     Route: 065
  5. AMITRIPTYLINE [Interacting]
     Active Substance: AMITRIPTYLINE
     Indication: SLEEP DISORDER
     Dosage: 25 MILLIGRAM, QD, (AT NIGHT)
     Route: 065
     Dates: start: 2012
  6. CLONAZEPAM. [Interacting]
     Active Substance: CLONAZEPAM
     Indication: STRESS
     Dosage: 0.5 DOSAGE FORM
     Route: 048
  7. OMEPRAZOLE. [Concomitant]
     Active Substance: OMEPRAZOLE
     Dosage: 1 DOSAGE FORM, QD
  8. ENBREL [Interacting]
     Active Substance: ETANERCEPT
     Indication: ARTHRITIS
     Dosage: 50 MILLIGRAM, QWK
     Route: 065
  9. CARBAMAZEPINE. [Interacting]
     Active Substance: CARBAMAZEPINE
     Indication: EMOTIONAL DISORDER
     Dosage: UNK
     Route: 065
  10. CARBAMAZEPINE. [Interacting]
     Active Substance: CARBAMAZEPINE
     Dosage: 200 MILLIGRAM, QD
     Route: 065
  11. AMITRIPTYLINE [Interacting]
     Active Substance: AMITRIPTYLINE
     Indication: EMOTIONAL DISORDER
     Dosage: 50 MILLIGRAM, QD
     Route: 065
  12. CLONAZEPAM. [Interacting]
     Active Substance: CLONAZEPAM
     Indication: ANXIETY
     Dosage: 0.5 DOSAGE FORM
     Route: 048
  13. CLONAZEPAM. [Interacting]
     Active Substance: CLONAZEPAM
     Indication: SLEEP DISORDER THERAPY
     Dosage: 24 MILLIGRAM, QD
     Route: 065
  14. SERTRALINE [Concomitant]
     Active Substance: SERTRALINE HYDROCHLORIDE
     Dosage: 20 MILLIGRAM, QD
  15. SERTRALINE [Concomitant]
     Active Substance: SERTRALINE HYDROCHLORIDE
     Indication: DEPRESSION
     Dosage: 50 MILLIGRAM
     Dates: start: 2014
  16. TRAMAL [Concomitant]
     Active Substance: TRAMADOL
     Indication: PAIN
     Dosage: SHE TAKES EVERY 15 DAYS WHEN COULD NOT WALK NEITHER MOVE HERSELF
     Route: 048
  17. TRAMADOL. [Concomitant]
     Active Substance: TRAMADOL
     Indication: PAIN
     Dosage: 50 MILLIGRAM
     Dates: start: 2016
  18. ENBREL [Interacting]
     Active Substance: ETANERCEPT
     Indication: OSTEOARTHRITIS
     Dosage: 50 MILLIGRAM, QWK
     Route: 065
  19. PREDNISONE. [Suspect]
     Active Substance: PREDNISONE
     Dosage: 5 MILLIGRAM, QD
     Route: 065
  20. VOLTAREN [Suspect]
     Active Substance: DICLOFENAC SODIUM
     Indication: PAIN
     Dosage: 50 MILLIGRAM, QWK
     Route: 065
     Dates: start: 2015
  21. VOLTAREN [Suspect]
     Active Substance: DICLOFENAC SODIUM
     Dosage: 50 MILLIGRAM, QD
     Route: 065
  22. CARBAMAZEPINE. [Interacting]
     Active Substance: CARBAMAZEPINE
     Indication: DEPRESSION
     Dosage: 200 MILLIGRAM, QD
     Route: 065
  23. AMITRIPTYLINE [Interacting]
     Active Substance: AMITRIPTYLINE
     Dosage: 40 MILLIGRAM, QD, (AT NIGHT)
     Route: 065
  24. PROFENID [Concomitant]
     Active Substance: KETOPROFEN
     Indication: PAIN
     Dosage: 50 MILLIGRAM, AS NECESSARY
     Dates: start: 2016
  25. ENBREL [Interacting]
     Active Substance: ETANERCEPT
     Dosage: 50 MILLIGRAM, QWK
     Route: 065
  26. CLONAZEPAM. [Interacting]
     Active Substance: CLONAZEPAM
     Indication: ANXIETY
     Dosage: 2 MILLIGRAM, AS NECESSARY
     Route: 048
     Dates: start: 2012
  27. CLONAZEPAM. [Interacting]
     Active Substance: CLONAZEPAM
     Indication: EMOTIONAL DISORDER
     Dosage: 24 MILLIGRAM
     Route: 065
  28. SIMVASTATIN. [Concomitant]
     Active Substance: SIMVASTATIN
     Indication: BLOOD CHOLESTEROL ABNORMAL
     Dosage: 20 MILLIGRAM, (NIGHT, 6 MOS PRIOR TO 02JUN2015)
     Dates: start: 2014
  29. FOLIC ACID. [Concomitant]
     Active Substance: FOLIC ACID
     Dosage: 1 DOSAGE FORM, QWK
     Dates: start: 2013
  30. LEFLUNOMIDE. [Concomitant]
     Active Substance: LEFLUNOMIDE
     Dosage: 20 MILLIGRAM, QD
     Dates: start: 2012
  31. TRAMAL [Concomitant]
     Active Substance: TRAMADOL
     Indication: GAIT INABILITY
  32. ENBREL [Interacting]
     Active Substance: ETANERCEPT
     Indication: OSTEOARTHRITIS
     Dosage: 50 MILLIGRAM, QWK
     Route: 058
  33. PREDNISONE. [Suspect]
     Active Substance: PREDNISONE
     Dosage: 10 MILLIGRAM, QD
     Route: 065
  34. PREDNISONE. [Suspect]
     Active Substance: PREDNISONE
     Dosage: 10 MILLIGRAM
     Route: 065
  35. VOLTAREN [Suspect]
     Active Substance: DICLOFENAC SODIUM
     Dosage: 50 MILLIGRAM
     Route: 065
  36. CARBAMAZEPINE. [Interacting]
     Active Substance: CARBAMAZEPINE
     Indication: SLEEP DISORDER
     Dosage: 100 MILLIGRAM, (HALF TABLET)
     Route: 065
     Dates: start: 2014
  37. AMITRIPTYLINE [Interacting]
     Active Substance: AMITRIPTYLINE
     Indication: PAIN
     Dosage: 40 MILLIGRAM, QD
     Route: 065
  38. OMEPRAZOLE. [Concomitant]
     Active Substance: OMEPRAZOLE
     Dosage: 1 TABLET (UNSPECIFIED DOSE), AT NIGHT
  39. ENBREL [Suspect]
     Active Substance: ETANERCEPT
     Indication: RHEUMATOID ARTHRITIS
     Dosage: 50 MG, WEEKLY
     Route: 058
     Dates: start: 201502
  40. OMEPRAZOLE. [Concomitant]
     Active Substance: OMEPRAZOLE
     Indication: GASTRIC DISORDER
     Dosage: 20 MG, DAILY (MORNING)
     Dates: start: 2014
  41. TRAMAL [Concomitant]
     Active Substance: TRAMADOL
     Indication: GAIT INABILITY
     Dosage: UNK, CYCLIC (TAKES EVERY 15 DAYS)
     Route: 048

REACTIONS (46)
  - Fluid retention [Unknown]
  - Emotional distress [Unknown]
  - Chest pain [Not Recovered/Not Resolved]
  - Sluggishness [Unknown]
  - Anogenital warts [Not Recovered/Not Resolved]
  - Condition aggravated [Recovered/Resolved]
  - Insomnia [Not Recovered/Not Resolved]
  - Inflammation [Recovered/Resolved]
  - Ear pain [Not Recovered/Not Resolved]
  - Drug intolerance [Unknown]
  - Injection site erythema [Recovered/Resolved]
  - Haematochezia [Not Recovered/Not Resolved]
  - Drug interaction [Not Recovered/Not Resolved]
  - Hyperhidrosis [Recovered/Resolved]
  - Decreased immune responsiveness [Recovered/Resolved]
  - Palpitations [Not Recovered/Not Resolved]
  - Rash [Unknown]
  - Sinusitis [Recovered/Resolved]
  - Vascular pain [Not Recovered/Not Resolved]
  - Gait inability [Unknown]
  - Erythema [Recovered/Resolved]
  - Mobility decreased [Not Recovered/Not Resolved]
  - Hypokinesia [Not Recovered/Not Resolved]
  - Peripheral swelling [Recovered/Resolved]
  - Infection [Recovered/Resolved]
  - Injection site reaction [Recovered/Resolved]
  - Pyrexia [Recovered/Resolved]
  - Feeling hot [Recovered/Resolved]
  - Discomfort [Not Recovered/Not Resolved]
  - Swelling [Unknown]
  - Condition aggravated [Unknown]
  - Anxiety [Not Recovered/Not Resolved]
  - Influenza [Recovered/Resolved]
  - Joint range of motion decreased [Recovered/Resolved]
  - Cough [Recovered/Resolved]
  - Arthralgia [Not Recovered/Not Resolved]
  - Feeling cold [Recovered/Resolved]
  - Depressed mood [Not Recovered/Not Resolved]
  - Screaming [Not Recovered/Not Resolved]
  - Dizziness [Not Recovered/Not Resolved]
  - Pneumonia [Recovered/Resolved]
  - Mass [Recovered/Resolved]
  - Drug dependence [Unknown]
  - Gait disturbance [Not Recovered/Not Resolved]
  - Pruritus [Recovered/Resolved]
  - Drug ineffective [Not Recovered/Not Resolved]

NARRATIVE: CASE EVENT DATE: 2015
